FAERS Safety Report 10844179 (Version 2)
Quarter: 2015Q1

REPORT INFORMATION
  Report Type: Spontaneous
  Country: PL (occurrence: PL)
  Receive Date: 20150220
  Receipt Date: 20150324
  Transmission Date: 20150721
  Serious: Yes (Death)
  Sender: FDA-Public Use
  Company Number: PL-SA-2015SA020285

PATIENT
  Sex: Male

DRUGS (3)
  1. METHOTREXATE [Concomitant]
     Active Substance: METHOTREXATE
  2. AZATHIOPRINE. [Concomitant]
     Active Substance: AZATHIOPRINE
  3. LEFLUNOMIDE. [Suspect]
     Active Substance: LEFLUNOMIDE
     Indication: RHEUMATOID ARTHRITIS
     Route: 065

REACTIONS (16)
  - Heart rate increased [Fatal]
  - C-reactive protein increased [Fatal]
  - Interstitial lung disease [Fatal]
  - Dyspnoea [Fatal]
  - Computerised tomogram thorax abnormal [Fatal]
  - Pyrexia [Fatal]
  - Blood pH increased [Fatal]
  - Cough [Fatal]
  - Hypocapnia [Fatal]
  - General physical health deterioration [Fatal]
  - Tachypnoea [Fatal]
  - Brain natriuretic peptide increased [Fatal]
  - Hypoxia [Fatal]
  - Crepitations [Fatal]
  - Chest X-ray abnormal [Fatal]
  - Lymphocyte count decreased [Fatal]

NARRATIVE: CASE EVENT DATE: 20110516
